FAERS Safety Report 23618149 (Version 2)
Quarter: 2024Q1

REPORT INFORMATION
  Report Type: Report from Study
  Country: ES (occurrence: ES)
  Receive Date: 20240311
  Receipt Date: 20240328
  Transmission Date: 20240410
  Serious: Yes (Disabling)
  Sender: FDA-Public Use
  Company Number: ES-TEVA-VS-3166846

PATIENT
  Age: 83 Year
  Sex: Female

DRUGS (7)
  1. TERIPARATIDE [Suspect]
     Active Substance: TERIPARATIDE
     Indication: Osteoporosis
     Dosage: 20MCG/80MCL,
     Route: 065
     Dates: start: 20240131
  2. ASPIRIN [Concomitant]
     Active Substance: ASPIRIN
     Indication: Antiplatelet therapy
     Dosage: FROM: A WHILE AGO, UNTIL: CONTINUED, DOSE: 0-0-1
  3. Nolotil [Concomitant]
     Indication: Pain
     Dosage: TIME INTERVAL: AS NECESSARY: FROM: A WHILE AGO, UNTIL: CONTINUED, DOSE: IF NECESSARY
  4. ACETAMINOPHEN [Concomitant]
     Active Substance: ACETAMINOPHEN
     Indication: Pain
     Dosage: FROM: A WHILE AGO, UNTIL: CONTINUED, DOSE: 1-0-0
  5. Pritor [Concomitant]
     Indication: Hypertension
     Dosage: FROM: A WHILE AGO, UNTIL: CONTINUED, DOSE: 1-0-0
  6. BISOPROLOL [Concomitant]
     Active Substance: BISOPROLOL\BISOPROLOL FUMARATE
     Indication: Arrhythmia
  7. OMEPRAZOLE [Concomitant]
     Active Substance: OMEPRAZOLE
     Indication: Gastritis prophylaxis

REACTIONS (4)
  - Respiratory fatigue [Not Recovered/Not Resolved]
  - Fatigue [Not Recovered/Not Resolved]
  - Hypersomnia [Not Recovered/Not Resolved]
  - Headache [Not Recovered/Not Resolved]

NARRATIVE: CASE EVENT DATE: 20240131
